FAERS Safety Report 15140483 (Version 1)
Quarter: 2018Q3

REPORT INFORMATION
  Report Type: Spontaneous
  Country: US (occurrence: US)
  Receive Date: 20180618
  Receipt Date: 20180618
  Transmission Date: 20181010
  Serious: Yes (Hospitalization)
  Sender: FDA-Public Use
  Company Number: None

PATIENT
  Age: 58 Year
  Sex: Male

DRUGS (1)
  1. TASIGNA [Suspect]
     Active Substance: NILOTINIB
     Dates: start: 20180308, end: 20180618

REACTIONS (2)
  - Pulmonary oedema [None]
  - Atrial fibrillation [None]

NARRATIVE: CASE EVENT DATE: 20180618
